FAERS Safety Report 4591419-7 (Version None)
Quarter: 2005Q1

REPORT INFORMATION
  Report Type: 
  Country: None (occurrence: None)
  Receive Date: 20050225
  Receipt Date: 20050216
  Transmission Date: 20050727
  Serious: Yes (Other)
  Sender: FDA-Public Use
  Company Number: PHBS2005JP02413

PATIENT
  Sex: 0

DRUGS (1)
  1. TEGRETOL [Suspect]
     Indication: POST-TRAUMATIC EPILEPSY
     Route: 065

REACTIONS (3)
  - CONVULSION [None]
  - OESOPHAGEAL CARCINOMA [None]
  - PLEURAL EFFUSION [None]
